FAERS Safety Report 4263394-6 (Version None)
Quarter: 2004Q1

REPORT INFORMATION
  Report Type: 
  Country: None (occurrence: None)
  Receive Date: 20040105
  Receipt Date: 20031223
  Transmission Date: 20041129
  Serious: Yes (Hospitalization)
  Sender: FDA-Public Use
  Company Number: FR-ROCHE-354767

PATIENT
  Age: 73 Year
  Sex: Male

DRUGS (14)
  1. HYPNOVEL [Suspect]
     Indication: DRUG USE FOR UNKNOWN INDICATION
     Route: 042
     Dates: start: 20031122, end: 20031127
  2. DOPAMINE HCL [Suspect]
     Indication: DRUG USE FOR UNKNOWN INDICATION
     Route: 065
     Dates: start: 20031122, end: 20031127
  3. ACUPAN [Suspect]
     Indication: DRUG USE FOR UNKNOWN INDICATION
     Route: 065
     Dates: start: 20031127, end: 20031130
  4. SUFENTANIL CITRATE [Suspect]
     Indication: DRUG USE FOR UNKNOWN INDICATION
     Route: 042
     Dates: start: 20031122, end: 20031127
  5. VANCOMYCIN [Suspect]
     Indication: DRUG USE FOR UNKNOWN INDICATION
     Dosage: REPORTED AS: DAKOTA 500M.
     Route: 065
     Dates: start: 20031122, end: 20031127
  6. VANCOMYCIN [Suspect]
     Dosage: REPORTED AS: MERCK.
     Route: 042
     Dates: start: 20031122, end: 20031127
  7. FLUCONAZOLE [Suspect]
     Indication: DRUG USE FOR UNKNOWN INDICATION
     Route: 042
     Dates: start: 20031123, end: 20031127
  8. PERFALGAN [Concomitant]
     Dates: start: 20031123, end: 20031124
  9. PRIMPERAN TAB [Concomitant]
     Dosage: DOSAGE REPORTED AS: ONE VIAL.
     Dates: start: 20031125, end: 20031125
  10. BURINEX [Concomitant]
  11. OFLOCET [Concomitant]
     Dates: start: 20031121
  12. CIFLOX [Suspect]
     Indication: DRUG USE FOR UNKNOWN INDICATION
     Route: 065
  13. MOPRAL [Suspect]
     Indication: DRUG USE FOR UNKNOWN INDICATION
     Route: 065
  14. TAZOCILLINE [Suspect]
     Indication: DRUG USE FOR UNKNOWN INDICATION
     Route: 065
     Dates: start: 20031121

REACTIONS (3)
  - DERMATITIS BULLOUS [None]
  - PYREXIA [None]
  - TOXIC SKIN ERUPTION [None]
